FAERS Safety Report 8271637-7 (Version None)
Quarter: 2012Q2

REPORT INFORMATION
  Report Type: 
  Country: None (occurrence: None)
  Receive Date: 20120410
  Receipt Date: 20120409
  Transmission Date: 20120825
  Serious: Yes (Hospitalization)
  Sender: FDA-Public Use
  Company Number: US-GLAXOSMITHKLINE-A0972779A

PATIENT
  Age: 57 Year
  Sex: Female

DRUGS (1)
  1. FLOLAN [Suspect]
     Indication: PULMONARY ARTERIAL HYPERTENSION
     Dosage: 35NGKM UNKNOWN
     Route: 042
     Dates: start: 19981217

REACTIONS (2)
  - DEHYDRATION [None]
  - TACHYCARDIA [None]
